FAERS Safety Report 5530448-3 (Version None)
Quarter: 2007Q4

REPORT INFORMATION
  Report Type: 
  Country: None (occurrence: None)
  Receive Date: 20071127
  Receipt Date: 20071127
  Transmission Date: 20080405
  Serious: Yes (Other)
  Sender: FDA-Public Use
  Company Number: None

PATIENT
  Sex: Female
  Weight: 49.8957 kg

DRUGS (2)
  1. SUDAFED PE REGULAR PFIZER [Suspect]
     Dosage: TWO FOUR HOURS PO; TWO FOUR HOURS PO
     Route: 048
     Dates: start: 20070811, end: 20070830
  2. SUDAFED PE REGULAR PFIZER [Suspect]
     Dosage: TWO FOUR HOURS PO; TWO FOUR HOURS PO
     Route: 048
     Dates: start: 20070830, end: 20070830

REACTIONS (3)
  - CONVULSION [None]
  - DIZZINESS [None]
  - LOSS OF CONSCIOUSNESS [None]
